FAERS Safety Report 19209232 (Version 3)
Quarter: 2021Q2

REPORT INFORMATION
  Report Type: Report from Study
  Country: US (occurrence: US)
  Receive Date: 20210503
  Receipt Date: 20210513
  Transmission Date: 20210717
  Serious: Yes (Hospitalization, Other)
  Sender: FDA-Public Use
  Company Number: US-GILEAD-2021-0527429

PATIENT
  Sex: Female

DRUGS (1)
  1. IDELALISIB [Suspect]
     Active Substance: IDELALISIB
     Indication: NEOPLASM MALIGNANT
     Dosage: 150 MG, BID
     Route: 048
     Dates: start: 20210218, end: 20210428

REACTIONS (5)
  - Renal disorder [Recovering/Resolving]
  - Hepatic enzyme increased [Not Recovered/Not Resolved]
  - Dehydration [Not Recovered/Not Resolved]
  - Liver disorder [Recovering/Resolving]
  - Blood calcium increased [Recovering/Resolving]
